FAERS Safety Report 12152800 (Version 1)
Quarter: 2016Q1

REPORT INFORMATION
  Report Type: Report from Study
  Country: NL (occurrence: NL)
  Receive Date: 20160304
  Receipt Date: 20160304
  Transmission Date: 20160526
  Serious: Yes (Hospitalization, Disabling, Other)
  Sender: FDA-Public Use
  Company Number: NL-BIOGEN-2012BI005290

PATIENT
  Age: 45 Year
  Sex: Female

DRUGS (2)
  1. TYSABRI [Suspect]
     Active Substance: NATALIZUMAB
     Indication: MULTIPLE SCLEROSIS
     Route: 042
     Dates: start: 20080521, end: 20120130
  2. FLUTICASONE PROPIONATE. [Concomitant]
     Active Substance: FLUTICASONE PROPIONATE
     Indication: HYPOACUSIS
     Route: 045
     Dates: start: 20120123, end: 20120207

REACTIONS (6)
  - Ophthalmic herpes simplex [Recovered/Resolved with Sequelae]
  - Uveitis [Recovered/Resolved with Sequelae]
  - Retinal injury [Unknown]
  - Hypoacusis [Not Recovered/Not Resolved]
  - Herpes zoster necrotising retinopathy [Unknown]
  - Varicella zoster virus infection [Unknown]

NARRATIVE: CASE EVENT DATE: 20120101
